FAERS Safety Report 17573003 (Version 4)
Quarter: 2020Q2

REPORT INFORMATION
  Report Type: Report from Study
  Country: GB (occurrence: GB)
  Receive Date: 20200323
  Receipt Date: 20200618
  Transmission Date: 20200713
  Serious: Yes (Life-Threatening, Hospitalization)
  Sender: FDA-Public Use
  Company Number: GB-EMD SERONO-9153602

PATIENT
  Age: 32 Year
  Sex: Female
  Weight: 73 kg

DRUGS (15)
  1. ACICLOVIR [Concomitant]
     Active Substance: ACYCLOVIR
     Indication: STOMATITIS
     Route: 048
     Dates: start: 20200307
  2. PARACETAMOL [Concomitant]
     Active Substance: ACETAMINOPHEN
     Indication: HEADACHE
     Dosage: 500 MG TWICE
     Route: 048
     Dates: start: 20190112, end: 20190113
  3. ACICLOVIR [Concomitant]
     Active Substance: ACYCLOVIR
     Indication: HERPES ZOSTER
     Route: 048
     Dates: start: 20190424
  4. MAVENCLAD [Suspect]
     Active Substance: CLADRIBINE
     Indication: RELAPSING-REMITTING MULTIPLE SCLEROSIS
     Route: 048
     Dates: start: 20190111
  5. AMITRIPTYLINE [Concomitant]
     Active Substance: AMITRIPTYLINE
     Indication: NEURALGIA
     Route: 048
     Dates: start: 20200129
  6. PARACETAMOL [Concomitant]
     Active Substance: ACETAMINOPHEN
     Route: 048
     Dates: start: 20190225
  7. IBUPROFEN. [Concomitant]
     Active Substance: IBUPROFEN
     Indication: PAIN
     Route: 048
     Dates: start: 2003
  8. DULOXETINE. [Concomitant]
     Active Substance: DULOXETINE
     Indication: NEURALGIA
     Route: 048
     Dates: start: 20190316
  9. DEPO-PROVERA [Concomitant]
     Active Substance: MEDROXYPROGESTERONE ACETATE
     Indication: CONTRACEPTION
     Dosage: ONCE EVERY 3 MONTHS
     Route: 058
     Dates: start: 20180101
  10. VITAMIN D                          /00318501/ [Concomitant]
     Active Substance: CHOLECALCIFEROL
     Indication: MULTIPLE SCLEROSIS
     Dosage: COLECALCIFEROL SUPPLEMENTATION?1600 TO 2000 UNITS EVERY DAY.
     Route: 048
     Dates: start: 20180304
  11. PARACETAMOL [Concomitant]
     Active Substance: ACETAMINOPHEN
     Indication: PAIN
     Route: 048
     Dates: start: 2003
  12. FLUCLOXACILLIN [Concomitant]
     Active Substance: FLUCLOXACILLIN
     Indication: IMPETIGO
     Route: 048
     Dates: start: 20190424
  13. MAVENCLAD [Suspect]
     Active Substance: CLADRIBINE
     Route: 048
     Dates: start: 2020
  14. AMITRIPTYLINE [Concomitant]
     Active Substance: AMITRIPTYLINE
     Route: 048
     Dates: start: 20200518
  15. ACICLOVIR [Concomitant]
     Active Substance: ACYCLOVIR
     Indication: LYMPHADENOPATHY
     Route: 048
     Dates: start: 20200203, end: 20200306

REACTIONS (1)
  - Upper respiratory tract infection [Recovered/Resolved with Sequelae]

NARRATIVE: CASE EVENT DATE: 20200317
